FAERS Safety Report 7554440-2 (Version None)
Quarter: 2011Q2

REPORT INFORMATION
  Report Type: 
  Country: None (occurrence: None)
  Receive Date: 20110617
  Receipt Date: 20110601
  Transmission Date: 20111010
  Serious: Yes (Hospitalization)
  Sender: FDA-Public Use
  Company Number: A0887656A

PATIENT
  Age: 59 Year
  Sex: Male
  Weight: 92.7 kg

DRUGS (11)
  1. AVAPRO [Concomitant]
  2. GLYBURIDE [Concomitant]
  3. GLUCOPHAGE [Concomitant]
  4. ZOCOR [Concomitant]
  5. GLUCOVANCE [Concomitant]
     Dates: start: 20030114
  6. METFORMIN HCL [Concomitant]
  7. LISINOPRIL [Concomitant]
  8. ALBUTEROL SULFATE AUTOHALER [Concomitant]
  9. PEPCID [Concomitant]
  10. ADVAIR DISKUS 100/50 [Concomitant]
  11. AVANDIA [Suspect]
     Dosage: 8MG PER DAY
     Route: 048
     Dates: start: 20030114

REACTIONS (3)
  - CARDIAC FAILURE CONGESTIVE [None]
  - FOOT FRACTURE [None]
  - CEREBROVASCULAR ACCIDENT [None]
